FAERS Safety Report 8524211-9 (Version None)
Quarter: 2012Q3

REPORT INFORMATION
  Report Type: 
  Country: None (occurrence: None)
  Receive Date: 20120720
  Receipt Date: 20120706
  Transmission Date: 20120928
  Serious: Yes (Hospitalization)
  Sender: FDA-Public Use
  Company Number: US-PURDUE-USA-2012-0089340

PATIENT
  Sex: Female
  Weight: 63.311 kg

DRUGS (10)
  1. OXYCODONE HCL/NALOXONE HCL CONTROLLED-RELEASE TABLETS [Concomitant]
     Dosage: 20 MG, BID
     Route: 048
     Dates: start: 20120428, end: 20120507
  2. AMLODIPINE [Concomitant]
     Indication: HYPERTENSION
     Dosage: 5 MG, DAILY
     Route: 048
     Dates: start: 20120105
  3. OXYCODONE HCL/NALOXONE HCL CR TAB20/10MG [Suspect]
     Indication: BACK PAIN
     Dosage: 20 MG, BID
     Route: 048
     Dates: start: 20120508, end: 20120623
  4. TRIAMTERENE AND HYDROCHLOROTHIAZID [Concomitant]
     Indication: HYPERTENSION
     Dosage: 37.5 MG, DAILY
     Route: 048
     Dates: start: 20000101
  5. SYNTHROID [Concomitant]
     Indication: HYPOTHYROIDISM
     Dosage: 88 MCG, DAILY
     Route: 048
     Dates: start: 20040101
  6. ESTRADIOL [Concomitant]
     Indication: HORMONE REPLACEMENT THERAPY
     Dosage: 1 MG, DAILY
     Route: 048
     Dates: start: 20080219
  7. EXCEDRIN                           /00110301/ [Concomitant]
     Indication: HEADACHE
     Dosage: 250 MG, PRN
     Route: 048
     Dates: start: 19700101
  8. OXYCODONE HCL [Suspect]
     Dosage: 5 MG, PRN
     Route: 048
     Dates: start: 20120419, end: 20120623
  9. OXYCODONE HCL/NALOXONE HCL CONTROLLED-RELEASE TABLETS [Concomitant]
     Indication: BACK PAIN
     Dosage: 10 MG, BID
     Route: 048
     Dates: start: 20120418, end: 20120427
  10. VITAMIN D [Concomitant]
     Indication: ROUTINE HEALTH MAINTENANCE
     Dosage: 1000 MG, DAILY
     Route: 048
     Dates: start: 20080101

REACTIONS (1)
  - RECTAL PERFORATION [None]
